FAERS Safety Report 9741166 (Version 2)
Quarter: 2014Q1

REPORT INFORMATION
  Report Type: Spontaneous
  Country: US (occurrence: US)
  Receive Date: 20131209
  Receipt Date: 20140116
  Transmission Date: 20141002
  Serious: Yes (Other)
  Sender: FDA-Public Use
  Company Number: US-TEVA-448931USA

PATIENT
  Age: 40 Year
  Sex: Female
  Weight: 62.65 kg

DRUGS (2)
  1. PARAGARD 380A [Suspect]
     Indication: CONTRACEPTION
     Route: 015
     Dates: start: 20131106, end: 20131204
  2. PARAGARD 380A [Suspect]
     Route: 015
     Dates: start: 20131204

REACTIONS (1)
  - Device dislocation [Recovered/Resolved]
